FAERS Safety Report 6163613-5 (Version None)
Quarter: 2009Q2

REPORT INFORMATION
  Report Type: 
  Country: None (occurrence: None)
  Receive Date: 20090422
  Receipt Date: 20090408
  Transmission Date: 20091009
  Serious: Yes (Other)
  Sender: FDA-Public Use
  Company Number: PL-ROCHE-627065

PATIENT
  Age: 48 Year
  Sex: Male

DRUGS (4)
  1. MYCOPHENOLATE MOFETIL [Suspect]
     Indication: HEART TRANSPLANT
     Dosage: REPORTED TO BE ADMINISTERED AS PART OF A GRADUALLY REDUCING DOSE SCHEME.
     Route: 065
  2. CYCLOSPORINE [Suspect]
     Indication: HEART TRANSPLANT
     Dosage: REPORTED TO BE ADMINISTERED AS PART OF A GRADUALLY REDUCING DOSE SCHEME.
     Route: 065
  3. PREDNISONE [Suspect]
     Indication: HEART TRANSPLANT
     Dosage: REPORTED TO BE ADMINISTERED AS PART OF A GRADUALLY REDUCING DOSE SCHEME.
     Route: 065
  4. AZATHIOPRINE [Suspect]
     Indication: HEART TRANSPLANT
     Route: 065

REACTIONS (1)
  - TRANSPLANT REJECTION [None]
